FAERS Safety Report 25387630 (Version 2)
Quarter: 2025Q3

REPORT INFORMATION
  Report Type: Spontaneous
  Country: US (occurrence: US)
  Receive Date: 20250603
  Receipt Date: 20250805
  Transmission Date: 20251020
  Serious: No
  Sender: ELI LILLY AND COMPANY
  Company Number: US-ELI_LILLY_AND_COMPANY-US202506001255

PATIENT
  Age: 30 Year
  Sex: Male

DRUGS (5)
  1. CYMBALTA [Suspect]
     Active Substance: DULOXETINE HYDROCHLORIDE
     Indication: Borderline personality disorder
     Route: 065
     Dates: start: 20230401
  2. NICOTINE [Suspect]
     Active Substance: NICOTINE
     Indication: Product used for unknown indication
     Route: 065
  3. DICLOFENAC [Concomitant]
     Active Substance: DICLOFENAC
     Indication: Inflammation
     Route: 065
     Dates: start: 20230907
  4. CLINDAMYCIN [Concomitant]
     Active Substance: CLINDAMYCIN
     Indication: Hidradenitis
     Route: 065
     Dates: start: 20250513
  5. ERYTHROMYCIN [Concomitant]
     Active Substance: ERYTHROMYCIN
     Indication: Hidradenitis
     Route: 065
     Dates: start: 20250513

REACTIONS (3)
  - Off label use [Unknown]
  - Paraesthesia [Not Recovered/Not Resolved]
  - Withdrawal syndrome [Unknown]

NARRATIVE: CASE EVENT DATE: 20230401
